FAERS Safety Report 15837782 (Version 1)
Quarter: 2018Q4

REPORT INFORMATION
  Report Type: Spontaneous
  Country: US (occurrence: US)
  Receive Date: 20181223
  Receipt Date: 20181223
  Transmission Date: 20190205
  Serious: Yes (Other)
  Sender: FDA-Public Use
  Company Number: None

PATIENT
  Age: 59 Year
  Sex: Female
  Weight: 90 kg

DRUGS (10)
  1. TRAZODONE [Concomitant]
     Active Substance: TRAZODONE HYDROCHLORIDE
  2. GABAPENTIN. [Concomitant]
     Active Substance: GABAPENTIN
  3. CIPROFLOXACIN 500MG TAKE 1 TAB PO Q12H FOR INFECTION FOR 10 DAYS. [Suspect]
     Active Substance: CIPROFLOXACIN
     Indication: BRONCHITIS CHRONIC
     Dosage: ?          QUANTITY:1 TABLET(S);?
     Route: 048
     Dates: start: 20171222, end: 20171231
  4. CALTRATE [Concomitant]
     Active Substance: CALCIUM CARBONATE
  5. PROTONIX [Concomitant]
     Active Substance: PANTOPRAZOLE SODIUM
  6. MULTI-VITAMIN [Concomitant]
     Active Substance: .ALPHA.-TOCOPHEROL ACETATE, DL-\ASCORBIC ACID\CYANOCOBALAMIN\FLUORIDE ION\FOLIC ACID\NIACIN\PYRIDOXINE\RIBOFLAVIN\THIAMINE\VITAMIN A\VITAMIN D
  7. CARDIZEM [Concomitant]
     Active Substance: DILTIAZEM HYDROCHLORIDE
  8. VITAMIN B-6 [Concomitant]
     Active Substance: PYRIDOXINE
  9. VITAMIN C [Concomitant]
     Active Substance: ASCORBIC ACID
  10. CIPROFLOXACIN 500MG TAKE 1 TAB PO Q12H FOR INFECTION FOR 10 DAYS. [Suspect]
     Active Substance: CIPROFLOXACIN
     Indication: RESPIRATORY TRACT INFECTION
     Dosage: ?          QUANTITY:1 TABLET(S);?
     Route: 048
     Dates: start: 20171222, end: 20171231

REACTIONS (5)
  - Pain [None]
  - Heart rate increased [None]
  - Neuropathy peripheral [None]
  - Extrasystoles [None]
  - Muscle strain [None]

NARRATIVE: CASE EVENT DATE: 20180924
